FAERS Safety Report 5163330-4 (Version None)
Quarter: 2006Q4

REPORT INFORMATION
  Report Type: 
  Country: None (occurrence: None)
  Receive Date: 20061204
  Receipt Date: 20061121
  Transmission Date: 20070319
  Serious: Yes (Hospitalization, Other)
  Sender: FDA-Public Use
  Company Number: AU-AMGEN-US198659

PATIENT
  Sex: Male

DRUGS (4)
  1. PANITUMUMAB [Suspect]
     Indication: COLORECTAL CANCER
     Route: 042
     Dates: start: 20061009
  2. IRINOTECAN HCL [Suspect]
     Route: 042
  3. FLUOROURACIL [Suspect]
     Route: 042
  4. ERYTHROMYCIN [Concomitant]
     Route: 065
     Dates: start: 20061111, end: 20061114

REACTIONS (11)
  - CATHETER RELATED INFECTION [None]
  - CHILLS [None]
  - DEHYDRATION [None]
  - DIARRHOEA [None]
  - HYPERTENSION [None]
  - HYPOXIA [None]
  - LUNG ABSCESS [None]
  - PLEURAL EFFUSION [None]
  - PNEUMONIA [None]
  - PYREXIA [None]
  - STAPHYLOCOCCAL SEPSIS [None]
